FAERS Safety Report 11537402 (Version 3)
Quarter: 2015Q4

REPORT INFORMATION
  Report Type: Spontaneous
  Country: US (occurrence: US)
  Receive Date: 20150922
  Receipt Date: 20151224
  Transmission Date: 20160304
  Serious: Yes (Hospitalization)
  Sender: FDA-Public Use
  Company Number: US-PFIZER INC-2015280433

PATIENT
  Age: 65 Year
  Sex: Female
  Weight: 98.87 kg

DRUGS (6)
  1. SUTENT [Suspect]
     Active Substance: SUNITINIB MALATE
     Indication: SPINDLE CELL SARCOMA
     Dosage: 50 MG, CYCLIC DAILY FOR 4 WEEKS, REST FOR 2 WEEKS (28 DAYS ON/14 DAYS OFF)
     Route: 048
     Dates: start: 20150901
  2. BYSTOLIC [Concomitant]
     Active Substance: NEBIVOLOL HYDROCHLORIDE
     Dosage: UNK
  3. SUTENT [Suspect]
     Active Substance: SUNITINIB MALATE
     Indication: GASTROINTESTINAL STROMAL TUMOUR
  4. COZAAR [Concomitant]
     Active Substance: LOSARTAN POTASSIUM
     Dosage: UNK
  5. MULTAQ [Concomitant]
     Active Substance: DRONEDARONE
     Dosage: UNK
  6. GLEEVEC [Concomitant]
     Active Substance: IMATINIB MESYLATE
     Dosage: UNK
     Dates: end: 20150804

REACTIONS (4)
  - Fluid retention [Recovered/Resolved]
  - Cough [Recovered/Resolved]
  - Heart rate increased [Recovered/Resolved]
  - Swelling [Recovered/Resolved]
